FAERS Safety Report 5072840-X (Version None)
Quarter: 2006Q3

REPORT INFORMATION
  Report Type: 
  Country: None (occurrence: None)
  Receive Date: 20060802
  Receipt Date: 20060727
  Transmission Date: 20061208
  Serious: Yes (Other)
  Sender: FDA-Public Use
  Company Number: 06-0089PO

PATIENT
  Age: 13 Year
  Sex: Male

DRUGS (2)
  1. MEFENAMIC ACID [Suspect]
     Indication: INTENTIONAL OVERDOSE
     Dosage: 4500 MG, ONCE, PO
     Route: 048
     Dates: start: 20060725
  2. DRAMIN (DIMENHYDRINATE) [Suspect]
     Indication: INTENTIONAL OVERDOSE
     Dosage: 6 TABLETS, ONCE, PO
     Route: 048
     Dates: start: 20060725

REACTIONS (1)
  - MULTIPLE DRUG OVERDOSE INTENTIONAL [None]
